FAERS Safety Report 23369296 (Version 1)
Quarter: 2024Q1

REPORT INFORMATION
  Report Type: Spontaneous
  Country: US (occurrence: US)
  Receive Date: 20240105
  Receipt Date: 20240105
  Transmission Date: 20240409
  Serious: Yes (Other)
  Sender: FDA-Public Use
  Company Number: US-MYLANLABS-2024M1001249

PATIENT
  Age: 72 Year
  Sex: Male

DRUGS (2)
  1. TADALAFIL [Suspect]
     Active Substance: TADALAFIL
     Indication: Erectile dysfunction
     Dosage: UNK; RCEIVED FOR 3 MONTHS AS MONOTHERAPY AND FOR 2 DAYS WITH VARDENAFIL
     Route: 065
  2. VARDENAFIL [Suspect]
     Active Substance: VARDENAFIL HYDROCHLORIDE
     Indication: Erectile dysfunction
     Dosage: UNK; RECEIVED FOR MORE THAN 2 YEARS AS MONOTHERAPY AND FOR 2 DAYS WITH TADALAFIL
     Route: 065

REACTIONS (1)
  - Drug-induced liver injury [Recovered/Resolved]
